FAERS Safety Report 7588646-3 (Version None)
Quarter: 2011Q3

REPORT INFORMATION
  Report Type: 
  Country: None (occurrence: None)
  Receive Date: 20110705
  Receipt Date: 20110610
  Transmission Date: 20111222
  Serious: Yes (Hospitalization, Other)
  Sender: FDA-Public Use
  Company Number: US-BAYER-2011-007940

PATIENT
  Age: 20 Year
  Sex: Female
  Weight: 68 kg

DRUGS (13)
  1. MOTRIN [Concomitant]
  2. YAZ [Suspect]
     Indication: PREMENSTRUAL SYNDROME
  3. PREDNISONE [Concomitant]
     Dosage: UNK
     Route: 048
     Dates: start: 20081220
  4. ALBUTEROL SULFATE AUTOHALER [Concomitant]
     Dosage: UNK
     Dates: start: 20081220
  5. ROBITUSSIN AC [Concomitant]
     Dosage: UNK UNK, PRN
     Route: 048
     Dates: start: 20081220
  6. ZOLOFT [Concomitant]
     Dosage: UNK
  7. CELEXA [Concomitant]
     Dosage: 20 MG, UNK
     Route: 048
  8. KEFLEX [Concomitant]
     Route: 048
  9. YAZ [Suspect]
     Indication: ACNE
     Dosage: UNK
     Dates: start: 20080929, end: 20090808
  10. XANAX [Concomitant]
     Indication: ANXIETY
     Dosage: UNK UNK, PRN
     Route: 048
  11. TESSALON [Concomitant]
     Route: 048
  12. TYLENOL-500 [Concomitant]
  13. DEXAMETHASONE [Concomitant]
     Dosage: UNK
     Route: 030
     Dates: start: 20081220, end: 20081220

REACTIONS (7)
  - PAIN [None]
  - CHEST PAIN [None]
  - ABDOMINAL PAIN [None]
  - DIARRHOEA [None]
  - CHOLECYSTITIS CHRONIC [None]
  - GALLBLADDER DISORDER [None]
  - NAUSEA [None]
